FAERS Safety Report 6817868-1 (Version None)
Quarter: 2010Q3

REPORT INFORMATION
  Report Type: 
  Country: None (occurrence: None)
  Receive Date: 20100706
  Receipt Date: 20100702
  Transmission Date: 20110219
  Serious: Yes (Other)
  Sender: FDA-Public Use
  Company Number: CA-BRISTOL-MYERS SQUIBB COMPANY-14006688

PATIENT
  Age: 57 Year
  Sex: Female

DRUGS (4)
  1. ORENCIA [Suspect]
     Indication: RHEUMATOID ARTHRITIS
     Dosage: 6NOV07,21NOV,12DEC07,7JAN08,6FEB08,5MAR,7APR,5MAY,3JUN,28JUL,25AUG;14OCT9;04MAR10 NO.OF INF:31
     Route: 042
     Dates: start: 20071106
  2. SINGULAIR [Concomitant]
     Indication: ASTHMA
  3. METHOTREXATE [Concomitant]
  4. ALTACE [Concomitant]

REACTIONS (5)
  - ABSCESS JAW [None]
  - HEADACHE [None]
  - HYPERTENSIVE CRISIS [None]
  - MIGRAINE [None]
  - NASOPHARYNGITIS [None]
